FAERS Safety Report 7324364-4 (Version None)
Quarter: 2011Q1

REPORT INFORMATION
  Report Type: 
  Country: None (occurrence: None)
  Receive Date: 20110203
  Receipt Date: 20100617
  Transmission Date: 20110831
  Serious: Yes (Hospitalization, Other)
  Sender: FDA-Public Use
  Company Number: 012612

PATIENT
  Sex: Male
  Weight: 72.7 kg

DRUGS (4)
  1. ASPIRIN [Concomitant]
  2. DEPAKOTE [Concomitant]
  3. KEPPRA [Suspect]
     Indication: CONVULSION
     Dosage: 3500 MG, 500MG : 3 TABS IN AM AND 4 TABS IN PM ORAL
     Route: 048
     Dates: start: 20100917
  4. DILANTIN [Concomitant]

REACTIONS (1)
  - CONVULSION [None]
